FAERS Safety Report 6680043-8 (Version None)
Quarter: 2010Q2

REPORT INFORMATION
  Report Type: 
  Country: None (occurrence: None)
  Receive Date: 20100413
  Receipt Date: 20100331
  Transmission Date: 20101027
  Serious: Yes (Death)
  Sender: FDA-Public Use
  Company Number: DE-AMGEN-US403146

PATIENT
  Sex: Male

DRUGS (3)
  1. ENBREL [Suspect]
     Indication: RHEUMATOID ARTHRITIS
     Route: 058
     Dates: start: 20090301, end: 20090701
  2. DECORTIN [Concomitant]
     Dosage: UNKNOWN
     Route: 065
     Dates: start: 20050801
  3. METEX [Concomitant]
     Dosage: 15 MG (FREQUENCY UNKNOWN)
     Route: 051
     Dates: start: 20050801

REACTIONS (1)
  - CARDIAC FAILURE ACUTE [None]
